FAERS Safety Report 22119042 (Version 1)
Quarter: 2023Q1

REPORT INFORMATION
  Report Type: Spontaneous
  Country: KR (occurrence: KR)
  Receive Date: 20230321
  Receipt Date: 20230321
  Transmission Date: 20230418
  Serious: Yes (Hospitalization, Other)
  Sender: FDA-Public Use
  Company Number: KR-ASTELLAS-2023US008567

PATIENT
  Age: 84 Year
  Sex: Male

DRUGS (2)
  1. XTANDI [Suspect]
     Active Substance: ENZALUTAMIDE
     Indication: Prostate cancer
     Dosage: UNK UNK, UNKNOWN FREQ.
     Route: 065
  2. XTANDI [Suspect]
     Active Substance: ENZALUTAMIDE
     Dosage: 80 MG, TWICE DAILY (2 CAPSULES TWICE DAILY)
     Route: 048
     Dates: end: 20230312

REACTIONS (18)
  - Dysphagia [Unknown]
  - Pharyngeal oedema [Unknown]
  - Choking [Unknown]
  - Odynophagia [Unknown]
  - Fall [Unknown]
  - Amnesia [Unknown]
  - Cognitive disorder [Unknown]
  - Muscular weakness [Unknown]
  - Decreased appetite [Unknown]
  - Weight decreased [Unknown]
  - Diarrhoea [Unknown]
  - Tongue movement disturbance [Unknown]
  - Chest pain [Unknown]
  - Vomiting [Unknown]
  - Poor sucking reflex [Unknown]
  - Product size issue [Unknown]
  - Product use complaint [Unknown]
  - Inappropriate schedule of product administration [Unknown]

NARRATIVE: CASE EVENT DATE: 20220101
